FAERS Safety Report 22355049 (Version 3)
Quarter: 2023Q4

REPORT INFORMATION
  Report Type: Report from Study
  Country: DE (occurrence: DE)
  Receive Date: 20230523
  Receipt Date: 20231206
  Transmission Date: 20240109
  Serious: Yes (Hospitalization)
  Sender: FDA-Public Use
  Company Number: DE-JNJFOC-20190610146

PATIENT
  Sex: Male

DRUGS (9)
  1. SIMPONI [Suspect]
     Active Substance: GOLIMUMAB
     Indication: Ankylosing spondylitis
     Route: 058
  2. SIMPONI [Suspect]
     Active Substance: GOLIMUMAB
     Indication: Axial spondyloarthritis
     Route: 058
     Dates: start: 20180418, end: 20180922
  3. SIMPONI [Suspect]
     Active Substance: GOLIMUMAB
     Route: 058
     Dates: start: 20181119
  4. SIMPONI [Suspect]
     Active Substance: GOLIMUMAB
     Route: 058
     Dates: start: 20220715
  5. ASPIRIN [Concomitant]
     Active Substance: ASPIRIN
  6. METFORMIN [Concomitant]
     Active Substance: METFORMIN HYDROCHLORIDE
  7. VALSARTAN [Concomitant]
     Active Substance: VALSARTAN
  8. ALLOPURINOL [Concomitant]
     Active Substance: ALLOPURINOL
  9. NAPROXEN [Concomitant]
     Active Substance: NAPROXEN
     Dates: start: 20210908

REACTIONS (8)
  - Acute coronary syndrome [Recovered/Resolved]
  - Nasopharyngitis [Unknown]
  - Neck pain [Unknown]
  - Dry skin [Unknown]
  - Cough [Unknown]
  - Influenza like illness [Unknown]
  - Skin discolouration [Unknown]
  - COVID-19 [Unknown]

NARRATIVE: CASE EVENT DATE: 20180907
